FAERS Safety Report 5241394-7 (Version None)
Quarter: 2007Q1

REPORT INFORMATION
  Report Type: 
  Country: None (occurrence: None)
  Receive Date: 20070220
  Receipt Date: 20070213
  Transmission Date: 20070707
  Serious: Yes (Other)
  Sender: FDA-Public Use
  Company Number: CA-BAYER-200710470GDS

PATIENT
  Age: 81 Year
  Sex: Male

DRUGS (2)
  1. NEXAVAR [Suspect]
     Indication: METASTATIC RENAL CELL CARCINOMA
     Dosage: TOTAL DAILY DOSE: 800 MG
     Route: 048
     Dates: start: 20070101, end: 20070101
  2. NEXAVAR [Suspect]
     Route: 048
     Dates: start: 20070101

REACTIONS (3)
  - BURNING SENSATION [None]
  - ELECTROCARDIOGRAM T WAVE INVERSION [None]
  - PALPITATIONS [None]
